FAERS Safety Report 9466731 (Version 2)
Quarter: 2013Q3

REPORT INFORMATION
  Report Type: Spontaneous
  Country: US (occurrence: US)
  Receive Date: 20130820
  Receipt Date: 20130913
  Transmission Date: 20140515
  Serious: No
  Sender: FDA-Public Use
  Company Number: US-TEVA-425132USA

PATIENT
  Sex: Male

DRUGS (1)
  1. QNASL [Suspect]
     Route: 045

REACTIONS (1)
  - Memory impairment [Not Recovered/Not Resolved]
